FAERS Safety Report 19924918 (Version 1)
Quarter: 2021Q4

REPORT INFORMATION
  Report Type: Spontaneous
  Country: CH (occurrence: CH)
  Receive Date: 20211006
  Receipt Date: 20211006
  Transmission Date: 20220303
  Serious: Yes (Other)
  Sender: FDA-Public Use
  Company Number: CH-ELI_LILLY_AND_COMPANY-CH202109003675

PATIENT
  Age: 31 Year
  Sex: Female

DRUGS (1)
  1. TERIPARATIDE [Suspect]
     Active Substance: TERIPARATIDE
     Indication: Cushing^s syndrome
     Dosage: UNK, UNKNOWN
     Route: 065

REACTIONS (5)
  - Renal failure [Unknown]
  - Fracture [Unknown]
  - Low turnover osteopathy [Unknown]
  - Stress fracture [Unknown]
  - Off label use [Unknown]
